FAERS Safety Report 13157253 (Version 1)
Quarter: 2017Q1

REPORT INFORMATION
  Report Type: Spontaneous
  Country: US (occurrence: US)
  Receive Date: 20170127
  Receipt Date: 20170127
  Transmission Date: 20170428
  Serious: No
  Sender: FDA-Public Use
  Company Number: US-ASTRAZENECA-2017SE05773

PATIENT
  Age: 21955 Day
  Sex: Male
  Weight: 136.1 kg

DRUGS (1)
  1. BYETTA [Suspect]
     Active Substance: EXENATIDE
     Indication: TYPE 2 DIABETES MELLITUS
     Dosage: 250 MCG / 1.2 ML PEN, 5 TWO TIMES A DAY
     Route: 058
     Dates: start: 20170117

REACTIONS (2)
  - Scratch [Unknown]
  - Needle issue [Unknown]

NARRATIVE: CASE EVENT DATE: 20170117
